FAERS Safety Report 15376256 (Version 2)
Quarter: 2018Q4

REPORT INFORMATION
  Report Type: Spontaneous
  Country: US (occurrence: US)
  Receive Date: 20180912
  Receipt Date: 20181120
  Transmission Date: 20190204
  Serious: No
  Sender: FDA-Public Use
  Company Number: US-009507513-1808USA010987

PATIENT
  Sex: Female

DRUGS (4)
  1. METHIMAZOLE. [Concomitant]
     Active Substance: METHIMAZOLE
  2. IRON (UNSPECIFIED) [Concomitant]
     Active Substance: IRON
     Dosage: VIA PARENTERAL ROUTE
  3. AMLODIPINE BESYLATE. [Concomitant]
     Active Substance: AMLODIPINE BESYLATE
  4. ZEPATIER [Suspect]
     Active Substance: ELBASVIR\GRAZOPREVIR
     Indication: CHRONIC HEPATITIS C
     Dosage: 50/100 MG, DAILY
     Route: 048
     Dates: start: 201807, end: 201809

REACTIONS (3)
  - Nausea [Unknown]
  - Product dose omission [Unknown]
  - Hypoaesthesia [Unknown]

NARRATIVE: CASE EVENT DATE: 2018
